FAERS Safety Report 9924349 (Version 1)
Quarter: 2014Q1

REPORT INFORMATION
  Report Type: Report from Study
  Country: US (occurrence: US)
  Receive Date: 20140226
  Receipt Date: 20140226
  Transmission Date: 20141002
  Serious: Yes (Other)
  Sender: FDA-Public Use
  Company Number: US-ROCHE-1352205

PATIENT
  Age: 73 Year
  Sex: Female
  Weight: 58.34 kg

DRUGS (22)
  1. NUTROPIN AQ [Suspect]
     Indication: GROWTH HORMONE DEFICIENCY
     Route: 058
  2. NUTROPIN AQ [Suspect]
     Route: 058
  3. HYDROCORTISONE [Concomitant]
     Route: 065
     Dates: end: 20130220
  4. DDAVP [Concomitant]
     Dosage: 1/2 TAB PM
     Route: 065
  5. RITALIN [Concomitant]
     Route: 065
  6. NORVASC [Concomitant]
     Route: 065
  7. SPIRONOLACTONE [Concomitant]
     Route: 065
  8. ZANTAC [Concomitant]
  9. NORCO [Concomitant]
     Dosage: 7.5/325 MG AS NEEDED
     Route: 065
  10. NORFLEX [Concomitant]
     Route: 065
  11. FIORINAL (UNITED STATES) [Concomitant]
     Indication: MIGRAINE
     Route: 065
  12. BENADRYL (UNITED STATES) [Concomitant]
     Indication: HYPERSENSITIVITY
  13. LOMOTIL (UNITED STATES) [Concomitant]
  14. FLUOXETIN [Concomitant]
     Route: 065
  15. BIOTIN [Concomitant]
     Route: 065
  16. IMODIUM [Concomitant]
  17. ZOFRAN [Concomitant]
     Route: 065
  18. VITAMIN D3 [Concomitant]
     Route: 065
  19. VITAMIN C [Concomitant]
  20. DHEA [Concomitant]
     Route: 065
  21. IRON SULFATE [Concomitant]
     Route: 065
  22. SYNTHROID [Concomitant]
     Route: 065

REACTIONS (23)
  - Weight decreased [Unknown]
  - Diarrhoea [Unknown]
  - Bone loss [Unknown]
  - Asthenia [Unknown]
  - Dry skin [Unknown]
  - Alopecia [Unknown]
  - Nausea [Unknown]
  - Night sweats [Unknown]
  - Chills [Unknown]
  - Skin lesion [Unknown]
  - Malaise [Unknown]
  - Headache [Unknown]
  - Colitis ulcerative [Unknown]
  - Thirst [Unknown]
  - Pollakiuria [Unknown]
  - Nausea [Unknown]
  - Skin atrophy [Unknown]
  - Insulin-like growth factor increased [Unknown]
  - Enuresis [Unknown]
  - Weight increased [Unknown]
  - Insulin-like growth factor decreased [Unknown]
  - Dehydroepiandrosterone decreased [Unknown]
  - Tri-iodothyronine decreased [Unknown]
